FAERS Safety Report 5380542-5 (Version None)
Quarter: 2007Q3

REPORT INFORMATION
  Report Type: 
  Country: None (occurrence: None)
  Receive Date: 20070703
  Receipt Date: 20070618
  Transmission Date: 20080115
  Serious: Yes (Hospitalization)
  Sender: FDA-Public Use
  Company Number: 02100-JPN-07-0298

PATIENT
  Age: 76 Year
  Sex: Male

DRUGS (9)
  1. CILOSTAZOL [Suspect]
     Dosage: ORAL
     Route: 048
  2. ASPIRIN [Suspect]
     Dosage: ORAL
     Route: 048
  3. RANITIDINE HYDROCHLORIDE [Suspect]
     Dosage: ORAL
     Route: 048
  4. ATORVASTATIN CALCIUM [Concomitant]
  5. ATENOLOL [Concomitant]
  6. BEPRIDIL HYDROCHLORIDE [Concomitant]
  7. BROTIZOLAM [Concomitant]
  8. WARFARIN POTASSIUM [Concomitant]
  9. NICORANDIL [Concomitant]

REACTIONS (6)
  - DYSPNOEA [None]
  - NEUTROPHIL COUNT DECREASED [None]
  - PLEURAL EFFUSION [None]
  - PO2 DECREASED [None]
  - PULMONARY OEDEMA [None]
  - WHITE BLOOD CELL COUNT DECREASED [None]
